FAERS Safety Report 8862553 (Version 3)
Quarter: 2013Q1

REPORT INFORMATION
  Report Type: Spontaneous
  Country: US (occurrence: US)
  Receive Date: 20121026
  Receipt Date: 20130117
  Transmission Date: 20140127
  Serious: Yes (Hospitalization, Congenital Anomaly, Other)
  Sender: FDA-Public Use
  Company Number: US-PFIZER INC-2012263705

PATIENT
  Age: 17 Month
  Sex: Male
  Weight: 3.7 kg

DRUGS (13)
  1. ZOLOFT [Suspect]
     Dosage: 100 MG, UNK
     Route: 064
     Dates: start: 19981127, end: 2009
  2. PRENATAL VITAMINS [Concomitant]
     Dosage: UNK
     Route: 064
  3. FAMOTIDINE [Concomitant]
     Dosage: UNK
     Route: 064
  4. OXYCODONE [Concomitant]
     Dosage: UNK
     Route: 064
  5. TEMAZEPAM [Concomitant]
     Dosage: UNK
     Route: 064
  6. PROMETHAZINE [Concomitant]
     Dosage: UNK
     Route: 064
  7. WELLBUTRIN [Concomitant]
     Dosage: UNK
     Route: 064
  8. MECLIZINE [Concomitant]
     Dosage: UNK
     Route: 064
  9. METOCLOPRAMIDE [Concomitant]
     Dosage: UNK
     Route: 064
  10. MEPERIDINE [Concomitant]
     Dosage: UNK
     Route: 064
  11. DIPHENHYDRAMINE [Concomitant]
     Dosage: UNK
     Route: 064
  12. ACETAMINOPHEN [Concomitant]
     Dosage: UNK
     Route: 064
  13. LORAZEPAM [Concomitant]
     Dosage: UNK
     Route: 064

REACTIONS (10)
  - Maternal exposure timing unspecified [Unknown]
  - Vascular anomaly [Unknown]
  - Congenital anomaly [Unknown]
  - Right aortic arch [Unknown]
  - Tricuspid valve incompetence [Unknown]
  - Pulmonary valve incompetence [Unknown]
  - Mitral valve incompetence [Unknown]
  - Vascular anomaly [Unknown]
  - Right ventricular hypertrophy [Unknown]
  - Left ventricular hypertrophy [Unknown]
